FAERS Safety Report 8267741-X (Version None)
Quarter: 2012Q2

REPORT INFORMATION
  Report Type: 
  Country: None (occurrence: None)
  Receive Date: 20120409
  Receipt Date: 20120326
  Transmission Date: 20120825
  Serious: Yes (Hospitalization)
  Sender: FDA-Public Use
  Company Number: US-RANBAXY-2012US-55272

PATIENT
  Age: 30 Year
  Sex: Male

DRUGS (3)
  1. METOCLOPRAMIDE [Suspect]
     Indication: NAUSEA
     Dosage: 10 MG, BID
     Route: 048
  2. METOCLOPRAMIDE [Suspect]
     Indication: VOMITING
  3. SERTRALINE HYDROCHLORIDE [Suspect]
     Indication: PRODUCT USED FOR UNKNOWN INDICATION
     Dosage: 50MG
     Route: 065

REACTIONS (7)
  - ANXIETY [None]
  - INSOMNIA [None]
  - SUICIDAL IDEATION [None]
  - HOMICIDAL IDEATION [None]
  - TACHYPHRENIA [None]
  - APPENDICITIS [None]
  - RESTLESSNESS [None]
